FAERS Safety Report 16855398 (Version 1)
Quarter: 2019Q4

REPORT INFORMATION
  Report Type: Spontaneous
  Country: US (occurrence: US)
  Receive Date: 20190926
  Receipt Date: 20190926
  Transmission Date: 20200122
  Serious: Yes (Disabling)
  Sender: FDA-Public Use
  Company Number: None

PATIENT
  Age: 15 Year
  Sex: Female

DRUGS (1)
  1. SINGULAIR [Suspect]
     Active Substance: MONTELUKAST SODIUM
     Indication: ASTHMA
     Route: 048
     Dates: start: 20091119, end: 20091210

REACTIONS (6)
  - Anxiety [None]
  - Aggression [None]
  - Depression [None]
  - Intentional self-injury [None]
  - Sleep terror [None]
  - Mood swings [None]

NARRATIVE: CASE EVENT DATE: 20091128
